FAERS Safety Report 17918405 (Version 1)
Quarter: 2020Q2

REPORT INFORMATION
  Report Type: Report from Study
  Country: CA (occurrence: CA)
  Receive Date: 20200619
  Receipt Date: 20200619
  Transmission Date: 20200714
  Serious: Yes (Other)
  Sender: FDA-Public Use
  Company Number: CA-JNJFOC-20200618774

PATIENT
  Sex: Female

DRUGS (3)
  1. STELARA [Suspect]
     Active Substance: USTEKINUMAB
  2. MICRONOR [Suspect]
     Active Substance: NORETHINDRONE
     Indication: MIGRAINE
     Route: 065
  3. STELARA [Suspect]
     Active Substance: USTEKINUMAB
     Indication: COLITIS ULCERATIVE
     Route: 058
     Dates: start: 20191210

REACTIONS (2)
  - Colitis ulcerative [Not Recovered/Not Resolved]
  - Migraine [Not Recovered/Not Resolved]
